FAERS Safety Report 11482754 (Version 1)
Quarter: 2015Q3

REPORT INFORMATION
  Report Type: Spontaneous
  Country: US (occurrence: None)
  Receive Date: 20150908
  Receipt Date: 20150908
  Transmission Date: 20151125
  Serious: Yes (Disabling)
  Sender: FDA-Public Use
  Company Number: None

PATIENT
  Age: 31 Year
  Sex: Female
  Weight: 132.45 kg

DRUGS (6)
  1. CREATOR [Concomitant]
  2. HUMALOG [Concomitant]
     Active Substance: INSULIN LISPRO
  3. GLUCOSE MONITOR [Concomitant]
  4. BELVIQ [Suspect]
     Active Substance: LORCASERIN HYDROCHLORIDE
     Indication: WEIGHT DECREASED
     Dosage: 2 PILLS  TWICE DAILY TAKEN BY MOUTH
     Route: 048
  5. INSULIN PUMP [Concomitant]
     Active Substance: INSULIN NOS
  6. VESTURA [Concomitant]
     Active Substance: DROSPIRENONE\ETHINYL ESTRADIOL

REACTIONS (4)
  - Suicidal ideation [None]
  - Therapeutic response decreased [None]
  - Depression [None]
  - Mood altered [None]

NARRATIVE: CASE EVENT DATE: 20150821
